FAERS Safety Report 7702534 (Version 5)
Quarter: 2013Q1

REPORT INFORMATION
  Report Type: Spontaneous
  Country: US (occurrence: US)
  Receive Date: 20101210
  Receipt Date: 20130307
  Transmission Date: 20140127
  Serious: No
  Sender: FDA-Public Use
  Company Number: US-BIOGENIDEC-2010BI042419

PATIENT
  Age: 53 None
  Sex: Female

DRUGS (2)
  1. TYSABRI [Suspect]
     Indication: MULTIPLE SCLEROSIS
     Route: 042
     Dates: start: 20100503
  2. REBIF [Concomitant]
     Indication: MULTIPLE SCLEROSIS

REACTIONS (13)
  - Tachycardia [Recovered/Resolved]
  - Flushing [Recovered/Resolved]
  - Hypersensitivity [Recovered/Resolved]
  - Defaecation urgency [Recovered/Resolved]
  - Palpitations [Recovered/Resolved]
  - Diarrhoea [Recovered/Resolved]
  - Discomfort [Recovered/Resolved]
  - Abdominal discomfort [Not Recovered/Not Resolved]
  - Headache [Recovered/Resolved]
  - Chest discomfort [Recovered/Resolved]
  - Chills [Recovered/Resolved]
  - Nausea [Recovered/Resolved]
  - Vomiting [Recovered/Resolved]
